FAERS Safety Report 25166592 (Version 1)
Quarter: 2025Q2

REPORT INFORMATION
  Report Type: Spontaneous
  Country: US (occurrence: US)
  Receive Date: 20250407
  Receipt Date: 20250407
  Transmission Date: 20250717
  Serious: No
  Sender: MACLEODS
  Company Number: US-MACLEODS PHARMA-MAC2025052427

PATIENT

DRUGS (2)
  1. DARIFENACIN [Suspect]
     Active Substance: DARIFENACIN
     Indication: Hypertonic bladder
     Dosage: ONE 15 MG TABLET AT BED TIME, NDC NUMBER:333420-277-07
     Route: 065
     Dates: start: 202501
  2. METFORMIN [Concomitant]
     Active Substance: METFORMIN HYDROCHLORIDE
     Indication: Diabetes mellitus
     Dosage: 1 TABLET DAILY
     Route: 065

REACTIONS (2)
  - Drug ineffective [Unknown]
  - Product substitution issue [Unknown]
